FAERS Safety Report 6070638-7 (Version None)
Quarter: 2009Q1

REPORT INFORMATION
  Report Type: 
  Country: None (occurrence: None)
  Receive Date: 20090209
  Receipt Date: 20090128
  Transmission Date: 20090719
  Serious: Yes (Hospitalization, Other)
  Sender: FDA-Public Use
  Company Number: FR-PFIZER INC-2009150743

PATIENT

DRUGS (5)
  1. VFEND [Suspect]
     Indication: FUNGAL INFECTION
     Dosage: 300 MG, 1X/DAY
     Route: 042
     Dates: start: 20081225, end: 20081226
  2. TEICOPLANIN [Concomitant]
     Route: 042
     Dates: start: 20081218, end: 20081231
  3. AMIKACIN SULFATE [Concomitant]
     Route: 042
     Dates: start: 20081218, end: 20081229
  4. CASPOFUNGIN ACETATE [Concomitant]
     Route: 042
     Dates: start: 20081222, end: 20081229
  5. TIENAM [Concomitant]
     Route: 042
     Dates: start: 20081222, end: 20081229

REACTIONS (8)
  - BRADYCARDIA [None]
  - CHILLS [None]
  - ELECTROCARDIOGRAM QT PROLONGED [None]
  - HYPOKALAEMIA [None]
  - HYPOTHERMIA [None]
  - MYALGIA [None]
  - MYDRIASIS [None]
  - PYREXIA [None]
